FAERS Safety Report 15834782 (Version 6)
Quarter: 2019Q3

REPORT INFORMATION
  Report Type: Spontaneous
  Country: US (occurrence: US)
  Receive Date: 20190116
  Receipt Date: 20190819
  Transmission Date: 20191004
  Serious: Yes (Hospitalization, Other)
  Sender: FDA-Public Use
  Company Number: US-PFIZER INC-2019018042

PATIENT
  Age: 70 Year
  Sex: Female
  Weight: 97.96 kg

DRUGS (2)
  1. XELJANZ XR [Suspect]
     Active Substance: TOFACITINIB CITRATE
     Dosage: 20 MG, 1X/DAY
  2. XELJANZ XR [Suspect]
     Active Substance: TOFACITINIB CITRATE
     Indication: RHEUMATOID ARTHRITIS
     Dosage: 11 MG, UNK
     Dates: start: 201811

REACTIONS (8)
  - Upper respiratory tract infection [Recovered/Resolved]
  - Incoherent [Recovered/Resolved]
  - Cerebrovascular accident [Recovered/Resolved]
  - Headache [Recovered/Resolved]
  - Sinusitis [Unknown]
  - Confusional state [Recovered/Resolved]
  - Bronchitis [Recovered/Resolved]
  - Product use issue [Unknown]
